FAERS Safety Report 6269965-X (Version None)
Quarter: 2009Q3

REPORT INFORMATION
  Report Type: 
  Country: None (occurrence: None)
  Receive Date: 20090716
  Receipt Date: 20090710
  Transmission Date: 20100115
  Serious: Yes (Life-Threatening, Hospitalization)
  Sender: FDA-Public Use
  Company Number: PHBS2002JP05245

PATIENT
  Sex: Female
  Weight: 58 kg

DRUGS (9)
  1. VOLTAREN [Suspect]
     Indication: ARTHRITIS
     Dosage: 75 MG/DAY
     Route: 048
     Dates: start: 19990801, end: 20010913
  2. METALCAPTASE [Suspect]
     Indication: ARTHRALGIA
     Dosage: 100 MG, TID
     Route: 048
     Dates: start: 19990801, end: 20010913
  3. ANPLAG [Concomitant]
     Dosage: 150 MG, UNK
     Route: 048
     Dates: start: 19980101, end: 20010913
  4. JUVELA NICOTINATE [Concomitant]
     Dosage: 300 MG, UNK
     Route: 048
     Dates: start: 19980101, end: 20010913
  5. MECOBALAMIN [Concomitant]
     Dosage: 1.5 MG, UNK
     Route: 048
     Dates: start: 20000401, end: 20010913
  6. MUCOSTA [Concomitant]
     Dosage: 300 MG, UNK
     Route: 048
     Dates: start: 19980101, end: 20010913
  7. DEPAS [Concomitant]
     Dosage: 1.5 MG, UNK
     Route: 048
     Dates: start: 20000301, end: 20010913
  8. PREDNISOLONE [Concomitant]
     Dosage: 20 MG/DAY
     Route: 048
     Dates: start: 19980801
  9. PREDNISOLONE [Concomitant]
     Dosage: 40 MG/DAY

REACTIONS (6)
  - BLOOD PRESSURE INCREASED [None]
  - GENERALISED OEDEMA [None]
  - NEPHROTIC SYNDROME [None]
  - RENAL FAILURE ACUTE [None]
  - TUBULOINTERSTITIAL NEPHRITIS [None]
  - WEIGHT INCREASED [None]
